FAERS Safety Report 6186584-4 (Version None)
Quarter: 2009Q2

REPORT INFORMATION
  Report Type: 
  Country: None (occurrence: None)
  Receive Date: 20090512
  Receipt Date: 20090504
  Transmission Date: 20091009
  Serious: Yes (Hospitalization)
  Sender: FDA-Public Use
  Company Number: ES-BRISTOL-MYERS SQUIBB COMPANY-14495378

PATIENT
  Age: 57 Year
  Sex: Male

DRUGS (12)
  1. ERBITUX [Suspect]
     Indication: COLON CANCER
     Dosage: 250MG FROM 2008, DRUG INTERRUPTED ON A UNK DATE AND RESTARTED IN JUL08,250MG FROM JUL08-30SEP08
     Route: 042
     Dates: start: 20080101, end: 20080930
  2. CAMPTOSAR [Suspect]
     Indication: COLON CANCER
     Dosage: CAMPTO 40MG/2ML.
     Route: 042
     Dates: start: 20080701, end: 20080930
  3. AVASTIN [Suspect]
     Indication: COLON CANCER
     Route: 042
     Dates: start: 20080701, end: 20080930
  4. HIBOR [Suspect]
     Indication: PELVIC VENOUS THROMBOSIS
     Dosage: SEP2008-OCT2008; 2008-UNK.
     Dates: start: 20080901
  5. HIBOR [Suspect]
     Indication: PULMONARY HYPERTENSION
     Dosage: SEP2008-OCT2008; 2008-UNK.
     Dates: start: 20080901
  6. OXALIPLATIN [Concomitant]
     Indication: COLON CANCER
  7. IRBESARTAN [Concomitant]
     Route: 048
  8. ALMAX [Concomitant]
  9. CALCIUM CARBONATE [Concomitant]
  10. SUCRALFATE [Concomitant]
  11. FERROUS GLYCINE SULFATE [Concomitant]
  12. DIPHENHYDRAMINE HCL [Concomitant]

REACTIONS (6)
  - GASTROINTESTINAL HAEMORRHAGE [None]
  - HAEMOLYTIC URAEMIC SYNDROME [None]
  - MICROANGIOPATHIC HAEMOLYTIC ANAEMIA [None]
  - PANCYTOPENIA [None]
  - RENAL FAILURE ACUTE [None]
  - RENAL TUBULAR NECROSIS [None]
